FAERS Safety Report 4479347-9 (Version None)
Quarter: 2004Q4

REPORT INFORMATION
  Report Type: 
  Country: None (occurrence: None)
  Receive Date: 20041015
  Receipt Date: 20041005
  Transmission Date: 20050328
  Serious: Yes (Life-Threatening, Hospitalization)
  Sender: FDA-Public Use
  Company Number: WAES 0409USA01614

PATIENT
  Age: 70 Year
  Sex: Male

DRUGS (5)
  1. COZAAR [Suspect]
     Dates: end: 20040901
  2. PLACEBO (UNSPECIFIED) [Suspect]
     Dates: end: 20040901
  3. ZAROXOLYN [Concomitant]
  4. FUROSEMIDE [Concomitant]
  5. SPIRONOLACTONE [Concomitant]

REACTIONS (14)
  - ABASIA [None]
  - ANOREXIA [None]
  - ASTHENIA [None]
  - CHEST PAIN [None]
  - CONSTIPATION [None]
  - CULTURE URINE POSITIVE [None]
  - EFFUSION [None]
  - HYPOKALAEMIA [None]
  - HYPONATRAEMIA [None]
  - LOBAR PNEUMONIA [None]
  - LUNG INFILTRATION [None]
  - PATHOGEN RESISTANCE [None]
  - PSEUDOMONAS INFECTION [None]
  - SPUTUM CULTURE POSITIVE [None]
